FAERS Safety Report 12651570 (Version 1)
Quarter: 2016Q3

REPORT INFORMATION
  Report Type: Spontaneous
  Country: TR (occurrence: TR)
  Receive Date: 20160815
  Receipt Date: 20160815
  Transmission Date: 20161109
  Serious: Yes (Hospitalization, Other)
  Sender: FDA-Public Use
  Company Number: TR-BAYER-2016-153429

PATIENT
  Age: 62 Year
  Sex: Male

DRUGS (2)
  1. ACETYLSALICYLIC ACID({=100 MG) [Suspect]
     Active Substance: ASPIRIN
     Indication: CORONARY ARTERIAL STENT INSERTION
     Dosage: 300 MG, UNK
     Route: 042
  2. TICAGRELOR [Suspect]
     Active Substance: TICAGRELOR
     Indication: CORONARY ARTERIAL STENT INSERTION
     Dosage: 180 MG, UNK

REACTIONS (4)
  - Vascular stent thrombosis [None]
  - Drug administration error [None]
  - Labelled drug-drug interaction medication error [None]
  - Electrocardiogram ST segment elevation [None]
